FAERS Safety Report 6411558-5 (Version None)
Quarter: 2009Q4

REPORT INFORMATION
  Report Type: 
  Country: None (occurrence: None)
  Receive Date: 20091023
  Receipt Date: 20091015
  Transmission Date: 20100525
  Serious: Yes (Hospitalization)
  Sender: FDA-Public Use
  Company Number: US-AMGEN-QUU369525

PATIENT
  Sex: Male

DRUGS (1)
  1. ENBREL [Suspect]
     Indication: ANKYLOSING SPONDYLITIS
     Route: 058
     Dates: start: 20030530

REACTIONS (5)
  - ARTHRITIS [None]
  - JOINT INJURY [None]
  - JOINT STIFFNESS [None]
  - JOINT SWELLING [None]
  - OSTEOARTHRITIS [None]
